FAERS Safety Report 24282840 (Version 1)
Quarter: 2024Q3

REPORT INFORMATION
  Report Type: Spontaneous
  Country: IL (occurrence: IL)
  Receive Date: 20240904
  Receipt Date: 20240904
  Transmission Date: 20241016
  Serious: Yes (Death, Hospitalization, Other)
  Sender: BRISTOL MYERS SQUIBB
  Company Number: IL-BRISTOL-MYERS SQUIBB COMPANY-2024-130089

PATIENT
  Age: 84 Year
  Sex: Male

DRUGS (2)
  1. ELIQUIS [Suspect]
     Active Substance: APIXABAN
     Indication: Atrial fibrillation
  2. APIXABAN [Suspect]
     Active Substance: APIXABAN
     Indication: Atrial fibrillation

REACTIONS (3)
  - Cerebral haemorrhage [Fatal]
  - Haemorrhage [Fatal]
  - Renal failure [Unknown]
